FAERS Safety Report 7950639-1 (Version None)
Quarter: 2011Q4

REPORT INFORMATION
  Report Type: 
  Country: None (occurrence: None)
  Receive Date: 20111130
  Receipt Date: 20111125
  Transmission Date: 20120403
  Serious: Yes (Hospitalization)
  Sender: FDA-Public Use
  Company Number: FR-BRISTOL-MYERS SQUIBB COMPANY-15586837

PATIENT
  Age: 46 Year
  Sex: Male

DRUGS (4)
  1. ATORVASTATIN CALCIUM [Concomitant]
     Dosage: 1 DF = 20 UNITS NOS
  2. DEPAKENE [Concomitant]
     Dosage: 1 DF = 500 UNITS NOS
  3. BLINDED: PLACEBO [Suspect]
     Indication: MALIGNANT MELANOMA
     Dosage: INTERRUPTED ON 25FEB11
     Route: 042
     Dates: start: 20110111, end: 20110225
  4. IPILIMUMAB [Suspect]
     Indication: MALIGNANT MELANOMA
     Dosage: 2490MG IN 3 INFUSIONS INTERRUPTED ON 25FEB11
     Route: 042
     Dates: start: 20110111, end: 20110225

REACTIONS (1)
  - HYPOPHYSITIS [None]
